FAERS Safety Report 9590510 (Version 1)
Quarter: 2013Q4

REPORT INFORMATION
  Report Type: Spontaneous
  Country: US (occurrence: US)
  Receive Date: 20131003
  Receipt Date: 20131003
  Transmission Date: 20140711
  Serious: No
  Sender: FDA-Public Use
  Company Number: US-AMGEN-USASP2012077851

PATIENT
  Age: 19 Year
  Sex: Female
  Weight: 49.89 kg

DRUGS (4)
  1. ENBREL [Suspect]
     Indication: PSORIATIC ARTHROPATHY
     Dosage: 25 MG, 2 TIMES/WK
     Route: 058
  2. MOBIC [Concomitant]
     Dosage: 15 MG, UNK
  3. FLEXERIL                           /00428402/ [Concomitant]
     Dosage: 5 MG, UNK
  4. MENEST                             /00073001/ [Concomitant]
     Dosage: 1.25 MG, UNK

REACTIONS (5)
  - Viral infection [Recovered/Resolved]
  - Vomiting [Recovered/Resolved]
  - Oropharyngeal pain [Recovered/Resolved]
  - Respiratory tract congestion [Recovered/Resolved]
  - Cough [Recovered/Resolved]
